FAERS Safety Report 9711626 (Version 4)
Quarter: 2014Q4

REPORT INFORMATION
  Report Type: Spontaneous
  Country: US (occurrence: US)
  Receive Date: 20131126
  Receipt Date: 20141205
  Transmission Date: 20150529
  Serious: Yes (Other)
  Sender: FDA-Public Use
  Company Number: US-BRISTOL-MYERS SQUIBB COMPANY-18787937

PATIENT
  Age: 68 Year
  Sex: Male
  Weight: 128.79 kg

DRUGS (10)
  1. OMEPRAZOLE. [Concomitant]
     Active Substance: OMEPRAZOLE
  2. TAMSULOSIN [Concomitant]
     Active Substance: TAMSULOSIN
     Indication: PROSTATE CANCER
  3. SIMVASTATIN. [Concomitant]
     Active Substance: SIMVASTATIN
     Indication: LIPIDS INCREASED
  4. METFORMIN [Concomitant]
     Active Substance: METFORMIN HYDROCHLORIDE
     Dosage: COMBINATION WITH LINAGLIPTIN:500 MG AT LUNCH AND 1000MG AT DINNER
  5. RAMIPRIL. [Concomitant]
     Active Substance: RAMIPRIL
     Indication: HYPERTENSION
  6. ASPIRIN. [Concomitant]
     Active Substance: ASPIRIN
  7. BYDUREON [Suspect]
     Active Substance: EXENATIDE
     Indication: TYPE 2 DIABETES MELLITUS
     Dosage: 1DF:4-5 WEEKS AGO?LOT#73259,EXP DT:FEB2016?THERAPY ON 21JUN13?LOT#73260, 73485 EXPDT:FEB16, JUN16
     Route: 058
     Dates: start: 201303
  8. TRADJENTA [Concomitant]
     Active Substance: LINAGLIPTIN
     Dosage: COMBINATION WITH METFORMIN:500 MG AT LUNCH AND 1000MG AT DINNER
  9. METOPROLOL [Concomitant]
     Active Substance: METOPROLOL
     Indication: HYPERTENSION
  10. JENTADUETO [Concomitant]
     Active Substance: LINAGLIPTIN\METFORMIN HYDROCHLORIDE
     Indication: TYPE 2 DIABETES MELLITUS

REACTIONS (10)
  - Injection site haemorrhage [Not Recovered/Not Resolved]
  - Blood glucose decreased [Recovered/Resolved]
  - Sleep apnoea syndrome [Recovering/Resolving]
  - Injection site discolouration [Unknown]
  - Fungal infection [Recovering/Resolving]
  - Decreased appetite [Not Recovered/Not Resolved]
  - Asthenia [Unknown]
  - Weight decreased [Recovering/Resolving]
  - Injection site pain [Unknown]
  - Abdominal distension [Unknown]

NARRATIVE: CASE EVENT DATE: 201304
